FAERS Safety Report 9055525 (Version 3)
Quarter: 2013Q4

REPORT INFORMATION
  Report Type: Spontaneous
  Country: JP (occurrence: JP)
  Receive Date: 20130206
  Receipt Date: 20131018
  Transmission Date: 20140711
  Serious: Yes (Death)
  Sender: FDA-Public Use
  Company Number: JP-GLAXOSMITHKLINE-B0860879A

PATIENT
  Age: 77 Year
  Sex: Male
  Weight: 61 kg

DRUGS (7)
  1. REVOLADE [Suspect]
     Indication: IMMUNE THROMBOCYTOPENIC PURPURA
     Dosage: 25MG PER DAY
     Route: 048
     Dates: start: 20110520, end: 20130110
  2. ZYLORIC [Concomitant]
     Indication: HYPERURICAEMIA
     Dosage: 200MG TWICE PER DAY
     Route: 048
     Dates: start: 20111108
  3. NU-LOTAN [Concomitant]
     Indication: HYPERTENSION
     Dosage: 50MG PER DAY
     Route: 048
     Dates: start: 20110921
  4. KREMEZIN [Concomitant]
     Indication: RENAL DISORDER
     Dosage: 2G TWICE PER DAY
     Route: 048
     Dates: start: 20120718
  5. VICTOZA [Concomitant]
     Indication: DIABETES MELLITUS
     Dosage: .6MG PER DAY
     Route: 058
     Dates: start: 20101208
  6. SPRYCEL [Concomitant]
     Route: 048
     Dates: start: 20130121
  7. TASIGNA [Concomitant]
     Route: 048
     Dates: start: 20130125

REACTIONS (10)
  - Chronic myeloid leukaemia [Not Recovered/Not Resolved]
  - Death [Fatal]
  - Anaemia [Unknown]
  - Hepatosplenomegaly [Unknown]
  - Mesenteric haematoma [Unknown]
  - White blood cell count increased [Unknown]
  - Headache [Unknown]
  - Subdural haematoma [Unknown]
  - Hemiparesis [Unknown]
  - Brain herniation [Unknown]
